FAERS Safety Report 24013199 (Version 1)
Quarter: 2024Q2

REPORT INFORMATION
  Report Type: Spontaneous
  Country: US (occurrence: US)
  Receive Date: 20240626
  Receipt Date: 20240626
  Transmission Date: 20240716
  Serious: No
  Sender: FDA-Public Use
  Company Number: US-BBU-2024000011

PATIENT
  Age: 44 Year
  Sex: Male

DRUGS (6)
  1. TOCILIZUMAB [Suspect]
     Active Substance: TOCILIZUMAB
     Indication: Systemic inflammatory response syndrome
     Route: 042
  2. TOCILIZUMAB [Suspect]
     Active Substance: TOCILIZUMAB
     Indication: Systemic inflammatory response syndrome
     Route: 042
  3. TOCILIZUMAB [Suspect]
     Active Substance: TOCILIZUMAB
     Indication: Systemic inflammatory response syndrome
     Route: 042
  4. PREDNISONE [Concomitant]
     Active Substance: PREDNISONE
     Indication: Systemic inflammatory response syndrome
  5. PREDNISONE [Concomitant]
     Active Substance: PREDNISONE
     Indication: Systemic inflammatory response syndrome
     Dosage: ELEVATED DOSE OF 80?120 MG DAILY
  6. PREDNISONE [Concomitant]
     Active Substance: PREDNISONE
     Indication: Systemic inflammatory response syndrome

REACTIONS (4)
  - Liver function test increased [Unknown]
  - Hepatomegaly [Unknown]
  - Hepatic steatosis [Unknown]
  - Off label use [Unknown]
